FAERS Safety Report 11071927 (Version 1)
Quarter: 2015Q2

REPORT INFORMATION
  Report Type: Spontaneous
  Country: US (occurrence: None)
  Receive Date: 20150427
  Receipt Date: 20150427
  Transmission Date: 20150821
  Serious: Yes (Other)
  Sender: FDA-Public Use
  Company Number: None

PATIENT
  Age: 8 Year
  Sex: Male
  Weight: 26.31 kg

DRUGS (2)
  1. REMERON [Suspect]
     Active Substance: MIRTAZAPINE
     Indication: DEPRESSION
     Dosage: 1.5 AT BEDTIME TAKEN BY MOUTH
     Route: 048
     Dates: start: 20150109, end: 20150315
  2. VYVANSE [Concomitant]
     Active Substance: LISDEXAMFETAMINE DIMESYLATE

REACTIONS (4)
  - Hallucination, visual [None]
  - Hallucination, auditory [None]
  - Formication [None]
  - Fear [None]

NARRATIVE: CASE EVENT DATE: 20150314
